FAERS Safety Report 6266067-3 (Version None)
Quarter: 2009Q3

REPORT INFORMATION
  Report Type: 
  Country: None (occurrence: None)
  Receive Date: 20090713
  Receipt Date: 20090709
  Transmission Date: 20100115
  Serious: Yes (Hospitalization, Other)
  Sender: FDA-Public Use
  Company Number: US-ABBOTT-09P-163-0582695-00

PATIENT
  Sex: Female
  Weight: 76.272 kg

DRUGS (7)
  1. HUMIRA [Suspect]
     Indication: RHEUMATOID ARTHRITIS
     Dates: start: 20060101, end: 20070301
  2. HUMIRA [Suspect]
     Dosage: PEN
     Dates: start: 20090625
  3. METHOTREXATE [Concomitant]
     Indication: RHEUMATOID ARTHRITIS
  4. ACTONEL [Concomitant]
     Indication: OSTEOPOROSIS
  5. FOLIC ACID [Concomitant]
     Indication: RHEUMATOID ARTHRITIS
  6. PREDNISONE [Concomitant]
     Indication: RHEUMATOID ARTHRITIS
  7. VITAMINS [Concomitant]
     Indication: ROUTINE HEALTH MAINTENANCE

REACTIONS (6)
  - ARTHRITIS [None]
  - ARTHRITIS INFECTIVE [None]
  - DRUG DOSE OMISSION [None]
  - HIP ARTHROPLASTY [None]
  - JOINT ARTHROPLASTY [None]
  - KNEE ARTHROPLASTY [None]
